FAERS Safety Report 7028371-0 (Version None)
Quarter: 2010Q4

REPORT INFORMATION
  Report Type: 
  Country: None (occurrence: None)
  Receive Date: 20101005
  Receipt Date: 20100922
  Transmission Date: 20110411
  Serious: Yes (Other)
  Sender: FDA-Public Use
  Company Number: US-PFIZER INC-2010121037

PATIENT
  Sex: Female

DRUGS (5)
  1. GABAPENTIN [Suspect]
     Indication: PAIN
     Dosage: 100 MG, 1X/DAY
     Dates: start: 20060101, end: 20060101
  2. GABAPENTIN [Suspect]
     Dosage: 600 MG, 3X/DAY
     Dates: start: 20060101
  3. METFORMIN [Concomitant]
     Dosage: UNK
  4. LISINOPRIL [Concomitant]
     Dosage: UNK
  5. PROTONIX [Concomitant]
     Dosage: UNK

REACTIONS (2)
  - DYSPHAGIA [None]
  - SURGERY [None]
